FAERS Safety Report 6225829-9 (Version None)
Quarter: 2009Q2

REPORT INFORMATION
  Report Type: 
  Country: None (occurrence: None)
  Receive Date: 20090612
  Receipt Date: 20090501
  Transmission Date: 20091009
  Serious: No
  Sender: FDA-Public Use
  Company Number: US-ABBOTT-09P-163-0571166-00

PATIENT
  Sex: Male
  Weight: 145.28 kg

DRUGS (19)
  1. HUMIRA [Suspect]
     Indication: PSORIASIS
     Route: 058
     Dates: start: 20070901
  2. RHINOCORT [Concomitant]
     Indication: SINUSITIS
     Dosage: 2 SPRAYS PER NOSTRIL
     Route: 048
  3. CLONAZEPAM [Concomitant]
     Indication: TONGUE SPASM
     Route: 048
  4. TORSEMIDE [Concomitant]
     Indication: FLUID RETENTION
     Route: 048
  5. TORSEMIDE [Concomitant]
     Route: 048
  6. ADVICOR [Concomitant]
     Indication: BLOOD CHOLESTEROL INCREASED
     Dosage: 1000/20 MG
     Route: 048
  7. CLONIDINE [Concomitant]
     Indication: HYPERTENSION
     Route: 048
  8. CARDIZEM CD [Concomitant]
     Indication: CARDIAC FAILURE CONGESTIVE
     Route: 048
  9. CARDIZEM CD [Concomitant]
     Indication: HYPERTENSION
  10. SINGULAIR [Concomitant]
     Indication: HYPERSENSITIVITY
     Route: 048
  11. ZYRTEC [Concomitant]
     Indication: HYPERSENSITIVITY
     Route: 048
  12. CLOBETASOL PROPIONATE [Concomitant]
     Indication: PSORIASIS
     Route: 061
  13. DOVONEX [Concomitant]
     Indication: PSORIASIS
     Route: 061
  14. ERYTHROMYCIN [Concomitant]
     Indication: PSORIASIS
     Route: 061
  15. ZANTAC [Concomitant]
     Indication: GASTROOESOPHAGEAL REFLUX DISEASE
     Route: 048
  16. PRILOSEC [Concomitant]
     Indication: GASTROOESOPHAGEAL REFLUX DISEASE
     Route: 048
  17. MUCINEX [Concomitant]
     Indication: HYPERSENSITIVITY
     Dosage: AS DIRECTED
     Route: 048
  18. BENADRYL [Concomitant]
     Indication: HYPERSENSITIVITY
     Route: 048
  19. SPIRONOLACTONE [Concomitant]
     Indication: FLUID RETENTION
     Route: 048

REACTIONS (1)
  - TUBERCULIN TEST POSITIVE [None]
